FAERS Safety Report 9681307 (Version 3)
Quarter: 2015Q1

REPORT INFORMATION
  Report Type: Report from Study
  Country: JP (occurrence: JP)
  Receive Date: 20131111
  Receipt Date: 20150323
  Transmission Date: 20150721
  Serious: Yes (Death, Other)
  Sender: FDA-Public Use
  Company Number: JP-GILEAD-2013-0087339

PATIENT
  Age: 71 Year
  Sex: Female
  Weight: 50 kg

DRUGS (18)
  1. AMBRISENTAN [Suspect]
     Active Substance: AMBRISENTAN
     Indication: SCLERODERMA
     Dosage: 7.5 MG, QD
     Route: 048
     Dates: start: 20120222, end: 20130211
  2. PALUX [Suspect]
     Active Substance: ALPROSTADIL
     Indication: PULMONARY ARTERIAL HYPERTENSION
     Dosage: UNK
     Route: 042
     Dates: start: 20130307, end: 20130405
  3. BAKTAR [Concomitant]
     Active Substance: SULFAMETHOXAZOLE\TRIMETHOPRIM
     Indication: ANTIFUNGAL PROPHYLAXIS
     Dosage: UNK DF, UNK
     Route: 048
  4. ITRIZOLE [Concomitant]
     Active Substance: ITRACONAZOLE
     Dosage: UNK
     Route: 048
     Dates: end: 20121101
  5. AMBRISENTAN [Suspect]
     Active Substance: AMBRISENTAN
     Indication: PULMONARY ARTERIAL HYPERTENSION
     Dosage: 5 MG, QD
     Route: 048
     Dates: start: 20120206, end: 20120221
  6. TAKEPRON [Concomitant]
     Active Substance: LANSOPRAZOLE
     Dosage: UNK
     Route: 048
     Dates: end: 20120905
  7. PROGRAF [Concomitant]
     Active Substance: TACROLIMUS\TACROLIMUS ANHYDROUS
     Indication: PULMONARY ARTERIAL HYPERTENSION
     Dosage: 1 MG, UNK
     Route: 048
     Dates: end: 20130405
  8. VASOLAN                            /00014302/ [Concomitant]
     Active Substance: VERAPAMIL HYDROCHLORIDE
     Dosage: UNK UNK, QD
     Dates: start: 20120727, end: 20130304
  9. UNISIA [Concomitant]
     Active Substance: AMLODIPINE BESYLATE\CANDESARTAN CILEXETIL
     Dosage: UNK
     Route: 048
  10. MAGNESIUM OXIDE. [Concomitant]
     Active Substance: MAGNESIUM OXIDE
     Indication: CONSTIPATION PROPHYLAXIS
     Dosage: UNK
     Route: 048
     Dates: end: 20120217
  11. FERROUS SULFATE [Concomitant]
     Active Substance: FERROUS SULFATE\FERROUS SULFATE, DRIED
     Dosage: UNK UNK, QD
     Dates: start: 20130212, end: 20130404
  12. AMBRISENTAN [Suspect]
     Active Substance: AMBRISENTAN
     Dosage: 10 MG, QD
     Route: 048
     Dates: start: 20130212, end: 20130504
  13. BERAPROST SODIUM [Concomitant]
     Active Substance: BERAPROST SODIUM
     Indication: PULMONARY ARTERIAL HYPERTENSION
     Dosage: UNK
     Route: 048
     Dates: start: 20120612, end: 20130504
  14. ONEALFA [Concomitant]
     Active Substance: ALFACALCIDOL
     Dosage: 1.0 ?G, UNK
     Route: 048
  15. NEXIUM [Concomitant]
     Active Substance: ESOMEPRAZOLE MAGNESIUM
     Dosage: UNK
     Dates: start: 20120906
  16. GASMOTIN [Concomitant]
     Active Substance: MOSAPRIDE CITRATE
     Dosage: UNK
     Route: 048
  17. BONALON [Concomitant]
     Active Substance: ALENDRONATE SODIUM
     Dosage: 35 MG, Q1WK
     Route: 048
  18. CODEINE PHOSPHATE [Concomitant]
     Active Substance: CODEINE PHOSPHATE
     Dosage: UNK
     Route: 048
     Dates: end: 20120217

REACTIONS (5)
  - Oedema [Recovering/Resolving]
  - Interstitial lung disease [Fatal]
  - Supraventricular tachycardia [Not Recovered/Not Resolved]
  - Renal impairment [Fatal]
  - Anaemia [Recovered/Resolved]

NARRATIVE: CASE EVENT DATE: 20120228
